FAERS Safety Report 8893312 (Version 4)
Quarter: 2013Q2

REPORT INFORMATION
  Report Type: Spontaneous
  Country: US (occurrence: None)
  Receive Date: 20121031
  Receipt Date: 20130402
  Transmission Date: 20140414
  Serious: Yes (Hospitalization)
  Sender: FDA-Public Use
  Company Number: 2012-1157

PATIENT
  Age: 73 Year
  Sex: Female

DRUGS (2)
  1. KYPROLIS [Suspect]
     Indication: PLASMA CELL MYELOMA
     Dosage: 9.7143 MG (34MG, CYCLE ONE) INTRAVENOUS
     Route: 042
     Dates: start: 20120830
  2. IRON [Concomitant]

REACTIONS (12)
  - Abdominal pain upper [None]
  - Vomiting [None]
  - Diarrhoea [None]
  - Cardiac disorder [None]
  - Fatigue [None]
  - Headache [None]
  - Asthenia [None]
  - Non-cardiac chest pain [None]
  - Rhinorrhoea [None]
  - Respiratory tract congestion [None]
  - Nausea [None]
  - Back pain [None]
